FAERS Safety Report 8536909-7 (Version None)
Quarter: 2012Q3

REPORT INFORMATION
  Report Type: 
  Country: None (occurrence: None)
  Receive Date: 20120713
  Receipt Date: 20120702
  Transmission Date: 20120928
  Serious: Yes (Hospitalization, Other)
  Sender: FDA-Public Use
  Company Number: 2012P1048057

PATIENT
  Age: 16 Year
  Sex: Female

DRUGS (2)
  1. HORMONE CONTRACEPTIVE [Concomitant]
  2. ISONIAZID [Suspect]
     Dosage: HALF BOTTLE;X1

REACTIONS (11)
  - STATUS EPILEPTICUS [None]
  - METABOLIC ACIDOSIS [None]
  - TRANSAMINASES INCREASED [None]
  - CONVULSION [None]
  - FOAMING AT MOUTH [None]
  - HEART RATE INCREASED [None]
  - RESPIRATORY RATE INCREASED [None]
  - INTENTIONAL OVERDOSE [None]
  - URINARY INCONTINENCE [None]
  - OXYGEN SATURATION DECREASED [None]
  - GRAND MAL CONVULSION [None]
